FAERS Safety Report 8982068 (Version 1)
Quarter: 2012Q4

REPORT INFORMATION
  Report Type: 
  Country: US (occurrence: US)
  Receive Date: 20121212
  Receipt Date: 20121212
  Transmission Date: 20130627
  Serious: Yes (Other)
  Sender: FDA-Public Use
  Company Number: US-ASTELLAS-1092248

PATIENT
  Sex: Female

DRUGS (5)
  1. TARCEVA [Suspect]
     Indication: TRACHEAL CANCER
     Route: 065
  2. TARCEVA [Suspect]
     Indication: SALIVARY GLAND NEOPLASM
  3. TARCEVA [Suspect]
     Indication: BRONCHIAL CARCINOMA
  4. TARCEVA [Suspect]
     Indication: LUNG NEOPLASM MALIGNANT
  5. TARCEVA [Suspect]
     Indication: SALIVARY GLAND CANCER

REACTIONS (5)
  - Malignant neoplasm progression [Unknown]
  - Dyspnoea [Unknown]
  - Asthenia [Unknown]
  - Rash [Unknown]
  - Oral mucosal blistering [Unknown]
